FAERS Safety Report 4492526-X (Version None)
Quarter: 2004Q4

REPORT INFORMATION
  Report Type: 
  Country: None (occurrence: None)
  Receive Date: 20041029
  Receipt Date: 20041020
  Transmission Date: 20050328
  Serious: Yes (Hospitalization)
  Sender: FDA-Public Use
  Company Number: K200301896

PATIENT
  Age: 80 Year
  Sex: Male

DRUGS (7)
  1. ALTACE CAPSULES (RAMIPRIL) CAPSULE, 1 DOSE FORM [Suspect]
     Dosage: 1 DOSE FORM, QD
     Dates: start: 20010715
  2. PERTUZUMAB () 840MG [Suspect]
     Indication: PROSTATE CANCER
     Dosage: SEE IMAGE
     Route: 042
     Dates: start: 20031117, end: 20031117
  3. GLIBENCLAMIDE (GLIBENCLAMIDE) 3DOSE FORM [Suspect]
     Dosage: 3 DOSE FORM, QD, ORAL
     Route: 048
     Dates: start: 19980215
  4. METFORMIN (METFORMIN) 3 DOSE FORM [Suspect]
     Dosage: 3 DOSE FORM, QD
     Dates: start: 19980215
  5. ASPIRIN [Suspect]
     Dosage: 1 DOSE FORM, QD
     Dates: start: 19980215
  6. TAMSULOSIN HYDROCHLORIDE (TAMSULOSIN HYDROCHLORIDE) 1DOSE FORM [Suspect]
     Dosage: 1 DOSE FORM, QD
     Dates: start: 20000215
  7. ATORVASTATIN (ATORVASTATIN) 1DOSE FORM [Suspect]
     Dosage: 1 DOSE FORM, QD
     Dates: start: 20010315

REACTIONS (3)
  - ANAEMIA [None]
  - HYPOGLYCAEMIA [None]
  - LOSS OF CONSCIOUSNESS [None]
